FAERS Safety Report 20838445 (Version 1)
Quarter: 2022Q2

REPORT INFORMATION
  Report Type: Spontaneous
  Country: GB (occurrence: GB)
  Receive Date: 20220517
  Receipt Date: 20220517
  Transmission Date: 20220721
  Serious: Yes (Hospitalization)
  Sender: FDA-Public Use
  Company Number: GB-MYLANLABS-2022M1036500

PATIENT
  Age: 25 Year
  Sex: Female

DRUGS (4)
  1. EPINEPHRINE [Suspect]
     Active Substance: EPINEPHRINE
     Indication: Cardiogenic shock
     Dosage: 1 MILLIGRAM,1MG GIVEN AS 100UG BOLUSES WITHIN THE FIRST 10MIN OF RESUSCITATION
     Route: 040
  2. SODIUM BICARBONATE [Suspect]
     Active Substance: SODIUM BICARBONATE
     Indication: Cardiogenic shock
     Dosage: 100 MILLILITER
     Route: 065
  3. INTRALIPID [Suspect]
     Active Substance: EGG PHOSPHOLIPIDS\GLYCERIN\SOYBEAN OIL
     Indication: Cardiogenic shock
     Dosage: 30 MILLIGRAM/KILOGRAM
     Route: 065
  4. CALCIUM GLUCONATE [Suspect]
     Active Substance: CALCIUM GLUCONATE
     Indication: Cardiogenic shock
     Dosage: 10 MILLILITER
     Route: 065

REACTIONS (1)
  - Drug ineffective [Unknown]
